FAERS Safety Report 9227612 (Version 1)
Quarter: 2013Q2

REPORT INFORMATION
  Report Type: Spontaneous
  Country: CH (occurrence: CH)
  Receive Date: 20130412
  Receipt Date: 20130412
  Transmission Date: 20140414
  Serious: Yes (Other)
  Sender: FDA-Public Use
  Company Number: CH-BRISTOL-MYERS SQUIBB COMPANY-18747733

PATIENT
  Age: 67 Year
  Sex: Female
  Weight: 62 kg

DRUGS (7)
  1. ABATACEPT SUBQ INJECTION 125MG/ML [Suspect]
     Route: 058
     Dates: start: 20120525, end: 20121120
  2. METHOTREXATE [Suspect]
     Dates: start: 20110120
  3. ECOFENAC [Concomitant]
     Route: 048
  4. ACIDUM FOLICUM [Concomitant]
     Route: 048
  5. PREDNISONE [Concomitant]
     Route: 048
  6. TARAXACUM [Concomitant]
  7. CITALOPRAM [Concomitant]
     Dates: start: 20121120, end: 20121128

REACTIONS (1)
  - Depression [Unknown]
